FAERS Safety Report 9199290 (Version 2)
Quarter: 2013Q2

REPORT INFORMATION
  Report Type: Spontaneous
  Country: US (occurrence: US)
  Receive Date: 20130329
  Receipt Date: 20130422
  Transmission Date: 20140414
  Serious: No
  Sender: FDA-Public Use
  Company Number: US-PFIZER INC-2013099356

PATIENT
  Age: 38 Year
  Sex: Male
  Weight: 81.63 kg

DRUGS (1)
  1. LYRICA [Suspect]
     Indication: CONVULSION
     Dosage: 100 MG, 2X/DAY

REACTIONS (1)
  - Memory impairment [Unknown]
